FAERS Safety Report 5755418-1 (Version None)
Quarter: 2008Q2

REPORT INFORMATION
  Report Type: 
  Country: None (occurrence: None)
  Receive Date: 20080529
  Receipt Date: 20080529
  Transmission Date: 20081010
  Serious: Yes (Hospitalization)
  Sender: FDA-Public Use
  Company Number: None

PATIENT
  Age: 80 Year
  Sex: Female
  Weight: 69.8539 kg

DRUGS (2)
  1. DIGITEK 0.25MG ACTIVIS [Suspect]
     Indication: HEART RATE ABNORMAL
     Dosage: 0.25MG 1 PER DAY PO
     Route: 048
     Dates: start: 20070930, end: 20071230
  2. METOPROLOL [Concomitant]

REACTIONS (3)
  - ATRIAL FIBRILLATION [None]
  - DIARRHOEA [None]
  - THERAPEUTIC AGENT TOXICITY [None]
